FAERS Safety Report 15349852 (Version 1)
Quarter: 2018Q3

REPORT INFORMATION
  Report Type: Spontaneous
  Country: NL (occurrence: NL)
  Receive Date: 20180904
  Receipt Date: 20180904
  Transmission Date: 20181010
  Serious: Yes (Other)
  Sender: FDA-Public Use
  Company Number: PHHY2018NL087237

PATIENT
  Sex: Female

DRUGS (4)
  1. INFLIXIMAB [Suspect]
     Active Substance: INFLIXIMAB
     Indication: FOETAL EXPOSURE DURING PREGNANCY
     Route: 064
  2. MESALAZINE [Suspect]
     Active Substance: MESALAMINE
     Indication: FOETAL EXPOSURE DURING PREGNANCY
     Route: 064
  3. PREDNISONE. [Suspect]
     Active Substance: PREDNISONE
     Indication: FOETAL EXPOSURE DURING PREGNANCY
     Route: 064
  4. ISONIAZID. [Concomitant]
     Active Substance: ISONIAZID
     Indication: FOETAL EXPOSURE DURING PREGNANCY
     Route: 064

REACTIONS (2)
  - Premature baby [Unknown]
  - Foetal exposure during pregnancy [Unknown]
